FAERS Safety Report 8099335-3 (Version None)
Quarter: 2012Q1

REPORT INFORMATION
  Report Type: 
  Country: None (occurrence: None)
  Receive Date: 20120131
  Receipt Date: 20120127
  Transmission Date: 20120608
  Serious: Yes (Life-Threatening, Other)
  Sender: FDA-Public Use
  Company Number: US-ASTRAZENECA-2011SE06761

PATIENT
  Age: 58 Year
  Sex: Female
  Weight: 82.1 kg

DRUGS (9)
  1. LISINOPRIL [Concomitant]
     Indication: HYPERTENSION
  2. EFFEXOR [Concomitant]
     Indication: BIPOLAR DISORDER
  3. SEROQUEL [Suspect]
     Indication: SLEEP DISORDER
     Route: 048
  4. SEVERAL MEDICATIONS [Concomitant]
  5. GLUCOPHAGE [Concomitant]
     Indication: DIABETES MELLITUS
     Dosage: 1000MG, BID
  6. SEROQUEL [Suspect]
     Indication: BIPOLAR DISORDER
     Route: 048
  7. LAMICTAL [Concomitant]
     Route: 065
  8. GLIPIZIDE [Concomitant]
     Indication: DIABETES MELLITUS
  9. EFFEXOR XR [Concomitant]

REACTIONS (3)
  - SUICIDE ATTEMPT [None]
  - FOOT FRACTURE [None]
  - FALL [None]
